FAERS Safety Report 24136718 (Version 1)
Quarter: 2024Q3

REPORT INFORMATION
  Report Type: Spontaneous
  Country: US (occurrence: US)
  Receive Date: 20240725
  Receipt Date: 20240725
  Transmission Date: 20241017
  Serious: Yes (Other)
  Sender: COLGATE
  Company Number: US-COLGATE PALMOLIVE COMPANY-20240701168

PATIENT
  Age: 69 Year
  Sex: Female

DRUGS (1)
  1. COLGATE MAX FRESH CLEAN MINT [Suspect]
     Active Substance: SODIUM FLUORIDE
     Dosage: UNK, BID
     Dates: start: 202405, end: 202407

REACTIONS (8)
  - Tongue exfoliation [Recovering/Resolving]
  - Burn oral cavity [Unknown]
  - Hypersensitivity [Unknown]
  - Glossodynia [Recovering/Resolving]
  - Oral pain [Unknown]
  - Paraesthesia oral [Unknown]
  - Oral pain [Unknown]
  - Product quality issue [Unknown]

NARRATIVE: CASE EVENT DATE: 20240501
